FAERS Safety Report 8824636 (Version 1)
Quarter: 2012Q4

REPORT INFORMATION
  Report Type: 
  Country: FR (occurrence: FR)
  Receive Date: 20121004
  Receipt Date: 20121004
  Transmission Date: 20130627
  Serious: Yes (Hospitalization)
  Sender: FDA-Public Use
  Company Number: PHHY2012FR072912

PATIENT
  Age: 52 Year
  Sex: Male

DRUGS (1)
  1. TASIGNA [Suspect]
     Indication: CHRONIC MYELOID LEUKAEMIA
     Dosage: 600 mg, daily
     Dates: start: 20110302, end: 20120502

REACTIONS (5)
  - Carotid artery stenosis [Unknown]
  - Carotid arteriosclerosis [Unknown]
  - Vascular calcification [Unknown]
  - Thrombosis [Unknown]
  - Aphasia [Recovered/Resolved]
